FAERS Safety Report 10191364 (Version 1)
Quarter: 2014Q2

REPORT INFORMATION
  Report Type: Spontaneous
  Country: LB (occurrence: LB)
  Receive Date: 20140523
  Receipt Date: 20140523
  Transmission Date: 20141212
  Serious: Yes (Hospitalization)
  Sender: FDA-Public Use
  Company Number: LB-MYLANLABS-2014S1011203

PATIENT
  Age: 29 Year
  Sex: Male

DRUGS (2)
  1. THIAMAZOLE [Suspect]
     Indication: BASEDOW^S DISEASE
     Dosage: 20 MG/DAY
     Route: 065
  2. PROPRANOLOL [Concomitant]
     Indication: BASEDOW^S DISEASE
     Dosage: 60 MG/DAY
     Route: 065

REACTIONS (2)
  - Myositis [Recovered/Resolved]
  - Fasciitis [Recovered/Resolved]
